FAERS Safety Report 9816182 (Version 1)
Quarter: 2014Q1

REPORT INFORMATION
  Report Type: Spontaneous
  Country: LU (occurrence: LU)
  Receive Date: 20140114
  Receipt Date: 20140114
  Transmission Date: 20141002
  Serious: Yes (Other)
  Sender: FDA-Public Use
  Company Number: LU-PFIZER INC-2014007099

PATIENT
  Sex: Female

DRUGS (1)
  1. EFEXOR EXEL [Suspect]
     Dosage: 37.5 MG, 1X/DAY

REACTIONS (1)
  - Drug dependence [Unknown]
